FAERS Safety Report 21055594 (Version 1)
Quarter: 2022Q3

REPORT INFORMATION
  Report Type: Report from Study
  Country: CN (occurrence: CN)
  Receive Date: 20220708
  Receipt Date: 20220708
  Transmission Date: 20221027
  Serious: Yes (Other)
  Sender: FDA-Public Use
  Company Number: CN-ALS-000746

PATIENT
  Age: 65 Year
  Sex: Female

DRUGS (3)
  1. QUETIAPINE [Suspect]
     Active Substance: QUETIAPINE
     Indication: Product use in unapproved indication
     Route: 065
  2. LORAZEPAM [Concomitant]
     Active Substance: LORAZEPAM
     Indication: Product used for unknown indication
     Route: 065
  3. QUETIAPINE [Suspect]
     Active Substance: QUETIAPINE
     Indication: Product use in unapproved indication
     Dosage: 300 MG EVERY NIGHT
     Route: 065

REACTIONS (3)
  - Suicide attempt [Unknown]
  - Drug ineffective [Unknown]
  - Product use in unapproved indication [Unknown]
